FAERS Safety Report 17774150 (Version 2)
Quarter: 2020Q2

REPORT INFORMATION
  Report Type: Report from Study
  Country: US (occurrence: US)
  Receive Date: 20200513
  Receipt Date: 20200529
  Transmission Date: 20200714
  Serious: Yes (Other)
  Sender: FDA-Public Use
  Company Number: US-TAIHO ONCOLOGY  INC-EU-2020-01618

PATIENT
  Age: 59 Year
  Sex: Female
  Weight: 92.25 kg

DRUGS (1)
  1. LONSURF [Suspect]
     Active Substance: TIPIRACIL HYDROCHLORIDE\TRIFLURIDINE
     Indication: RECTAL CANCER
     Dosage: CURRENT CYCLE UNKNOWN
     Route: 048

REACTIONS (5)
  - Pleural effusion [Unknown]
  - Nausea [Unknown]
  - Body temperature increased [Unknown]
  - Cytopenia [Unknown]
  - Cough [Unknown]

NARRATIVE: CASE EVENT DATE: 202003
